FAERS Safety Report 14123679 (Version 1)
Quarter: 2017Q4

REPORT INFORMATION
  Report Type: Spontaneous
  Country: None (occurrence: US)
  Receive Date: 20171025
  Receipt Date: 20171025
  Transmission Date: 20180321
  Serious: Yes (Hospitalization, Other)
  Sender: FDA-Public Use
  Company Number: US-BIOVITRUM-2017US0969

PATIENT
  Sex: Female

DRUGS (3)
  1. CYCLOSPORINE. [Concomitant]
     Active Substance: CYCLOSPORINE
  2. KINERET [Suspect]
     Active Substance: ANAKINRA
     Indication: HISTIOCYTOSIS HAEMATOPHAGIC
     Route: 058
  3. PREDNISOLONE. [Concomitant]
     Active Substance: PREDNISOLONE

REACTIONS (11)
  - Sleep apnoea syndrome [Unknown]
  - Drug ineffective [Unknown]
  - Snoring [Unknown]
  - Respiratory syncytial virus infection [Unknown]
  - Interstitial lung disease [Unknown]
  - Lower respiratory tract inflammation [Unknown]
  - Tachypnoea [Unknown]
  - Clubbing [Unknown]
  - Pulmonary granuloma [Unknown]
  - Alveolar lung disease [Unknown]
  - Pleural effusion [Unknown]
